FAERS Safety Report 7911357-9 (Version None)
Quarter: 2011Q4

REPORT INFORMATION
  Report Type: 
  Country: None (occurrence: None)
  Receive Date: 20111109
  Receipt Date: 20111027
  Transmission Date: 20120403
  Serious: Yes (Hospitalization, Other)
  Sender: FDA-Public Use
  Company Number: 2011P1009352

PATIENT
  Age: 58 Year
  Sex: Male
  Weight: 77.1115 kg

DRUGS (6)
  1. TRAMADOL HCL [Concomitant]
  2. ANTARA (MICRONIZED) [Concomitant]
  3. WARFARIN SODIUM [Suspect]
     Indication: THROMBOSIS
     Dosage: 5 MG;QD;PO
     Route: 048
     Dates: start: 20010101, end: 20111005
  4. CELEBREX [Concomitant]
  5. RAMIPRIL [Concomitant]
  6. PLAQUENIL [Concomitant]

REACTIONS (7)
  - RENAL FAILURE ACUTE [None]
  - HAEMATOMA [None]
  - MUSCULOSKELETAL PAIN [None]
  - COAGULOPATHY [None]
  - HAEMOGLOBIN DECREASED [None]
  - HYPOTENSION [None]
  - INTERNATIONAL NORMALISED RATIO INCREASED [None]
